FAERS Safety Report 13459286 (Version 1)
Quarter: 2017Q2

REPORT INFORMATION
  Report Type: Report from Study
  Country: US (occurrence: US)
  Receive Date: 20170419
  Receipt Date: 20170419
  Transmission Date: 20170830
  Serious: Yes (Hospitalization)
  Sender: FDA-Public Use
  Company Number: US-BAYER-2017-071147

PATIENT
  Age: 57 Year
  Sex: Male

DRUGS (1)
  1. NEXAVAR [Suspect]
     Active Substance: SORAFENIB
     Indication: HEPATOCELLULAR CARCINOMA
     Dosage: 400 MG, BID
     Route: 048
     Dates: start: 20170324, end: 20170410

REACTIONS (6)
  - Abdominal pain [None]
  - Pyrexia [None]
  - Ileus [None]
  - Leukocytosis [None]
  - Cough [None]
  - Chest pain [None]

NARRATIVE: CASE EVENT DATE: 201704
